FAERS Safety Report 20993874 (Version 1)
Quarter: 2022Q2

REPORT INFORMATION
  Report Type: Report from Study
  Country: US (occurrence: US)
  Receive Date: 20220622
  Receipt Date: 20220622
  Transmission Date: 20220721
  Serious: Yes (Death, Hospitalization)
  Sender: FDA-Public Use
  Company Number: US-HLS-202200548

PATIENT
  Age: 71 Year
  Sex: Male

DRUGS (1)
  1. CLOZAPINE [Suspect]
     Active Substance: CLOZAPINE
     Indication: Schizophrenia
     Route: 048
     Dates: start: 2018

REACTIONS (4)
  - Pneumonia aspiration [Fatal]
  - Death [Fatal]
  - Osteomyelitis [Fatal]
  - Ulcer [Fatal]

NARRATIVE: CASE EVENT DATE: 20220517
